FAERS Safety Report 5658938-3 (Version None)
Quarter: 2008Q1

REPORT INFORMATION
  Report Type: 
  Country: None (occurrence: None)
  Receive Date: 20080310
  Receipt Date: 20070508
  Transmission Date: 20080703
  Serious: No
  Sender: FDA-Public Use
  Company Number: US-BAYER-200711440BCC

PATIENT
  Age: 15 Year
  Sex: Male
  Weight: 64 kg

DRUGS (4)
  1. ALEVE [Suspect]
     Indication: PROCEDURAL PAIN
     Dosage: TOTAL DAILY DOSE: 660 MG  UNIT DOSE: 220 MG
     Route: 048
     Dates: start: 20070506
  2. ALEVE [Suspect]
     Dosage: TOTAL DAILY DOSE: 660 MG  UNIT DOSE: 220 MG
     Route: 048
     Dates: start: 20070507
  3. HYDROCODONE [Concomitant]
     Dates: end: 20070505
  4. IBUPROFEN [Concomitant]
     Dates: end: 20070505

REACTIONS (1)
  - ABDOMINAL PAIN UPPER [None]
